FAERS Safety Report 9291317 (Version 5)
Quarter: 2013Q3

REPORT INFORMATION
  Report Type: Spontaneous
  Country: JP (occurrence: JP)
  Receive Date: 20130515
  Receipt Date: 20130911
  Transmission Date: 20140515
  Serious: Yes (Hospitalization)
  Sender: FDA-Public Use
  Company Number: JP-OTSUKA-JP-2013-11304

PATIENT
  Age: 73 Year
  Sex: Male
  Weight: 80.1 kg

DRUGS (10)
  1. SAMSCA [Suspect]
     Indication: GENERALISED OEDEMA
     Dosage: 15 MG MILLIGRAM(S), QD
     Route: 048
     Dates: start: 20121204, end: 20121206
  2. AMLODIPINE [Concomitant]
     Indication: HYPERTENSION
     Dosage: 5 MG MILLIGRAM(S), BID
     Route: 048
  3. FUROSEMIDE [Concomitant]
     Indication: OEDEMA
     Dosage: 80 MG MILLIGRAM(S), BID
     Route: 048
  4. LIPITOR [Concomitant]
     Indication: DYSLIPIDAEMIA
     Dosage: 5 MG MILLIGRAM(S), QD
     Route: 048
  5. REBAMIPIDE [Concomitant]
     Indication: GASTRITIS
     Dosage: 100 MG MILLIGRAM(S), BID
     Route: 048
  6. ZOLPIDEM [Concomitant]
     Indication: INSOMNIA
     Dosage: 5 MG MILLIGRAM(S), QD
     Route: 048
  7. WARFARIN K [Concomitant]
     Indication: ATRIAL FIBRILLATION
     Dosage: 2.5 MG MILLIGRAM(S), QD
     Route: 048
  8. ALFLOSIN [Concomitant]
     Indication: HYPERTENSION
     Dosage: 1 MG MILLIGRAM(S), QD
     Route: 048
     Dates: start: 20121009
  9. FEBURIC [Concomitant]
     Indication: HYPERURICAEMIA
     Dosage: 10 MG MILLIGRAM(S), QD
     Route: 048
     Dates: start: 20121113
  10. FEROTYM [Concomitant]
     Indication: ANAEMIA
     Dosage: 50 MG MILLIGRAM(S), BID
     Route: 048
     Dates: start: 20121113

REACTIONS (1)
  - Cerebral infarction [Recovering/Resolving]
